FAERS Safety Report 4516907-0 (Version None)
Quarter: 2004Q4

REPORT INFORMATION
  Report Type: 
  Country: None (occurrence: None)
  Receive Date: 20041130
  Receipt Date: 20041014
  Transmission Date: 20050328
  Serious: Yes (Hospitalization, Other)
  Sender: FDA-Public Use
  Company Number: 200413170GDS

PATIENT
  Age: 62 Year
  Sex: Male

DRUGS (12)
  1. DACARBAZINE [Suspect]
     Indication: MALIGNANT MELANOMA
     Dosage: 800 MG/M2
     Dates: start: 20040301
  2. INTRON A [Suspect]
     Indication: MALIGNANT MELANOMA
     Dosage: 10 MIU, TIW,SUBCUTANEOUS
     Route: 058
     Dates: start: 20020218, end: 20020317
  3. INTRON A [Suspect]
     Indication: MALIGNANT MELANOMA
     Dosage: 10 MIU, TIW,SUBCUTANEOUS
     Route: 058
     Dates: start: 20020319, end: 20030302
  4. TEMODAL [Suspect]
     Indication: MALIGNANT MELANOMA
     Dosage: 200 MG, TOTAL DAILY, ORAL
     Route: 048
     Dates: start: 20020408, end: 20020412
  5. TEMODAL [Suspect]
     Indication: MALIGNANT MELANOMA
     Dosage: 200 MG, TOTAL DAILY, ORAL
     Route: 048
     Dates: start: 20020506, end: 20020510
  6. TEMODAL [Suspect]
     Indication: MALIGNANT MELANOMA
     Dosage: 200 MG, TOTAL DAILY, ORAL
     Route: 048
     Dates: start: 20020603, end: 20020607
  7. TEMODAL [Suspect]
     Indication: MALIGNANT MELANOMA
     Dosage: 200 MG, TOTAL DAILY, ORAL
     Route: 048
     Dates: start: 20020701, end: 20020705
  8. TEMODAL [Suspect]
     Indication: MALIGNANT MELANOMA
     Dosage: 200 MG, TOTAL DAILY, ORAL
     Route: 048
     Dates: start: 20020729, end: 20020802
  9. TEMODAL [Suspect]
     Indication: MALIGNANT MELANOMA
     Dosage: 200 MG, TOTAL DAILY, ORAL
     Route: 048
     Dates: start: 20020826, end: 20020830
  10. VINBLASTINE SULFATE [Suspect]
     Indication: MALIGNANT MELANOMA
     Dosage: 1.6 MG/M2
     Dates: start: 20040301
  11. CARBOPLATIN [Suspect]
     Indication: MALIGNANT MELANOMA
     Dosage: 20 MG/M2
     Dates: start: 20040301
  12. INTERFERON [Suspect]
     Indication: MALIGNANT MELANOMA
     Dosage: 5 MIU,TIW
     Dates: start: 20040301

REACTIONS (10)
  - FEBRILE NEUTROPENIA [None]
  - HAEMATOTOXICITY [None]
  - HAEMOGLOBIN DECREASED [None]
  - MALIGNANT MELANOMA [None]
  - MALIGNANT NEOPLASM PROGRESSION [None]
  - METASTASES TO LYMPH NODES [None]
  - PLATELET COUNT DECREASED [None]
  - RED BLOOD CELL COUNT DECREASED [None]
  - REFUSAL OF TREATMENT BY PATIENT [None]
  - WHITE BLOOD CELL COUNT DECREASED [None]
